FAERS Safety Report 10568515 (Version 2)
Quarter: 2014Q4

REPORT INFORMATION
  Report Type: Spontaneous
  Country: BE (occurrence: BE)
  Receive Date: 20141106
  Receipt Date: 20141106
  Transmission Date: 20150529
  Serious: Yes (Other)
  Sender: FDA-Public Use
  Company Number: BE-SHIRE-BE201406833

PATIENT
  Sex: Male
  Weight: 46 kg

DRUGS (1)
  1. ELAPRASE [Suspect]
     Active Substance: IDURSULFASE
     Indication: MUCOPOLYSACCHARIDOSIS II
     Dosage: 24 MG (4 VIALS), UNKNOWN
     Route: 041

REACTIONS (4)
  - Quality of life decreased [Unknown]
  - Drug ineffective [Unknown]
  - Blindness [Unknown]
  - Fatigue [Unknown]
